FAERS Safety Report 8614754-1 (Version None)
Quarter: 2012Q3

REPORT INFORMATION
  Report Type: 
  Country: None (occurrence: None)
  Receive Date: 20120823
  Receipt Date: 20120820
  Transmission Date: 20120928
  Serious: Yes (Life-Threatening)
  Sender: FDA-Public Use
  Company Number: GB-PFIZER INC-2012203266

PATIENT
  Age: 51 Year
  Sex: Male
  Weight: 110 kg

DRUGS (2)
  1. ATENOLOL [Concomitant]
     Dates: start: 20120719
  2. RAMIPRIL [Suspect]
     Dosage: UNK

REACTIONS (2)
  - SWELLING FACE [None]
  - OBSTRUCTIVE AIRWAYS DISORDER [None]
